FAERS Safety Report 24413504 (Version 1)
Quarter: 2024Q4

REPORT INFORMATION
  Report Type: Spontaneous
  Country: CN (occurrence: CN)
  Receive Date: 20241008
  Receipt Date: 20241008
  Transmission Date: 20250114
  Serious: Yes (Other)
  Sender: ELI LILLY AND CO
  Company Number: CN-Merck Healthcare KGaA-2024051998

PATIENT
  Age: 66 Year
  Sex: Female

DRUGS (2)
  1. ERBITUX [Suspect]
     Active Substance: CETUXIMAB
     Indication: Colon neoplasm
     Dosage: 600 MG, UNK
     Route: 041
     Dates: start: 20240829, end: 20240829
  2. CAPECITABINE [Suspect]
     Active Substance: CAPECITABINE
     Indication: Colon neoplasm
     Dosage: 0.75 G, BID
     Route: 048
     Dates: start: 20240829, end: 20240918

REACTIONS (1)
  - White blood cell count decreased [Recovering/Resolving]

NARRATIVE: CASE EVENT DATE: 20240903
